FAERS Safety Report 17204709 (Version 1)
Quarter: 2019Q4

REPORT INFORMATION
  Report Type: Spontaneous
  Country: US (occurrence: US)
  Receive Date: 20191226
  Receipt Date: 20191226
  Transmission Date: 20200122
  Serious: Yes (Death)
  Sender: FDA-Public Use
  Company Number: US-ABBVIE-19P-163-3210156-00

PATIENT
  Sex: Female
  Weight: 9.4 kg

DRUGS (2)
  1. SYNAGIS [Suspect]
     Active Substance: PALIVIZUMAB
     Indication: PREMATURE BABY
     Route: 030
  2. SYNAGIS [Suspect]
     Active Substance: PALIVIZUMAB
     Indication: PREMATURE BABY
     Dosage: DOSE REDUCED
     Route: 030

REACTIONS (2)
  - Death [Fatal]
  - Weight decreased [Unknown]
